FAERS Safety Report 4680840-4 (Version None)
Quarter: 2005Q2

REPORT INFORMATION
  Report Type: 
  Country: None (occurrence: None)
  Receive Date: 20050601
  Receipt Date: 20050601
  Transmission Date: 20051028
  Serious: Yes (Hospitalization)
  Sender: FDA-Public Use
  Company Number: None

PATIENT
  Age: 71 Year
  Sex: Male

DRUGS (14)
  1. FUDR [Suspect]
     Dosage: 160 MG/KG
     Dates: start: 20050214
  2. FUDR [Suspect]
     Dosage: 160 MG/KG
     Dates: start: 20050221
  3. FUDR [Suspect]
     Dosage: 160 MG/KG
     Dates: start: 20050314
  4. OXALIPLATIN 75 MG/M2 [Suspect]
     Dosage: 75 MG/M2
     Dates: start: 20050214
  5. OXALIPLATIN 75 MG/M2 [Suspect]
     Dosage: 75 MG/M2
     Dates: start: 20050221
  6. OXALIPLATIN 75 MG/M2 [Suspect]
     Dosage: 75 MG/M2
     Dates: start: 20050314
  7. LEUCOVORIN [Suspect]
     Dosage: 500 MG/M2
     Dates: start: 20050321
  8. TAXOTERE [Suspect]
     Dosage: 20 MG/M2
     Dates: start: 20050328
  9. NEUPOGEN [Concomitant]
  10. PROCRIT [Concomitant]
  11. ALOXI [Concomitant]
  12. EMEND [Concomitant]
  13. DEXAMETHASONE [Concomitant]
  14. BENADRYL [Concomitant]

REACTIONS (1)
  - PYREXIA [None]
